FAERS Safety Report 21882933 (Version 1)
Quarter: 2023Q1

REPORT INFORMATION
  Report Type: Spontaneous
  Country: US (occurrence: US)
  Receive Date: 20230119
  Receipt Date: 20230119
  Transmission Date: 20230417
  Serious: Yes (Death, Hospitalization)
  Sender: FDA-Public Use
  Company Number: US-APOTEX-2023AP001361

PATIENT
  Age: 55 Year
  Sex: Female

DRUGS (4)
  1. ACETAMINOPHEN [Suspect]
     Active Substance: ACETAMINOPHEN
     Indication: Product used for unknown indication
     Dosage: UNK
     Route: 048
  2. ACETAMINOPHEN [Suspect]
     Active Substance: ACETAMINOPHEN
     Dosage: UNK
  3. LEVAMISOLE [Suspect]
     Active Substance: LEVAMISOLE
     Indication: Product used for unknown indication
     Dosage: UNK
     Route: 048
  4. LEVAMISOLE [Suspect]
     Active Substance: LEVAMISOLE
     Dosage: UNK

REACTIONS (1)
  - Medication error [Fatal]
